FAERS Safety Report 14268018 (Version 2)
Quarter: 2018Q1

REPORT INFORMATION
  Report Type: Spontaneous
  Country: US (occurrence: US)
  Receive Date: 20171211
  Receipt Date: 20180220
  Transmission Date: 20180508
  Serious: Yes (Other)
  Sender: FDA-Public Use
  Company Number: US-ASTELLAS-2017US051606

PATIENT
  Age: 3 Month
  Sex: Male

DRUGS (2)
  1. MYCOPHENOLATE MOFETIL. [Concomitant]
     Active Substance: MYCOPHENOLATE MOFETIL
     Indication: HEART TRANSPLANT
     Dosage: UNK UNK, ONCE DAILY (20-26 MG/KG)
     Route: 065
  2. TACROLIMUS SYSTEMIC [Suspect]
     Active Substance: TACROLIMUS
     Indication: HEART TRANSPLANT
     Dosage: UNK UNK, ONCE DAILY (0.2-0.26 MG/KG), ADJUSTED TO GOAL SERUM TROUGH 8-10 NG/ML
     Route: 048

REACTIONS (6)
  - Otitis media [Unknown]
  - Eczema [Recovering/Resolving]
  - Eosinophilia [Unknown]
  - Paradoxical drug reaction [Recovering/Resolving]
  - Upper respiratory tract infection [Unknown]
  - Off label use [Unknown]
